FAERS Safety Report 7816106-0 (Version None)
Quarter: 2011Q4

REPORT INFORMATION
  Report Type: 
  Country: None (occurrence: None)
  Receive Date: 20111015
  Receipt Date: 20111003
  Transmission Date: 20120403
  Serious: Yes (Hospitalization, Other)
  Sender: FDA-Public Use
  Company Number: US-ASTRAZENECA-2011SE08531

PATIENT
  Age: 53 Year
  Sex: Female
  Weight: 48.1 kg

DRUGS (12)
  1. SEROQUEL [Suspect]
     Route: 048
  2. XANAX [Concomitant]
     Indication: BIPOLAR DISORDER
     Route: 048
  3. REQUIP [Concomitant]
     Indication: MUSCLE SPASMS
     Route: 048
     Dates: start: 20100101
  4. RANZIDINE [Concomitant]
     Indication: HERNIA
     Route: 048
     Dates: start: 20090101
  5. IBUPROFEN [Concomitant]
     Indication: PAIN
     Route: 048
  6. CITALOPRAM HPR [Concomitant]
     Indication: BIPOLAR DISORDER
     Route: 048
  7. ROPINIROLE [Concomitant]
     Indication: MUSCLE SPASMS
     Route: 048
  8. CELEXA [Concomitant]
     Indication: DEPRESSION
     Dates: start: 20090101
  9. TRAMADOL HCL [Concomitant]
     Indication: PAIN
     Route: 048
     Dates: start: 20100101
  10. PLAVIX [Concomitant]
     Indication: CEREBROVASCULAR ACCIDENT
     Route: 048
     Dates: start: 20100101
  11. IBUPROFEN [Concomitant]
     Route: 048
  12. SEROQUEL [Suspect]
     Indication: BIPOLAR DISORDER
     Route: 048
     Dates: start: 20060101

REACTIONS (8)
  - FEELING ABNORMAL [None]
  - MIDDLE INSOMNIA [None]
  - WRONG TECHNIQUE IN DRUG USAGE PROCESS [None]
  - MUSCLE TWITCHING [None]
  - DRUG DOSE OMISSION [None]
  - TRANSIENT ISCHAEMIC ATTACK [None]
  - INSOMNIA [None]
  - CEREBROVASCULAR ACCIDENT [None]
